FAERS Safety Report 6126685-X (Version None)
Quarter: 2009Q1

REPORT INFORMATION
  Report Type: 
  Country: None (occurrence: None)
  Receive Date: 20090320
  Receipt Date: 20090313
  Transmission Date: 20090719
  Serious: Yes (Death, Hospitalization)
  Sender: FDA-Public Use
  Company Number: US-PFIZER INC-2009175924

PATIENT
  Sex: Male
  Weight: 115.65 kg

DRUGS (18)
  1. MARAVIROC [Suspect]
     Indication: HIV INFECTION
     Dosage: 150 MG, 2X/DAY
     Route: 048
     Dates: start: 20060220
  2. LAMIVUDINE [Concomitant]
     Dosage: UNK
     Route: 048
     Dates: start: 20060221
  3. TENOFOVIR [Concomitant]
     Dosage: UNK
     Route: 048
     Dates: start: 20060221
  4. ZIDOVUDINE [Concomitant]
     Dosage: UNK
     Route: 048
     Dates: start: 20060817
  5. DARUNAVIR [Concomitant]
     Dosage: UNK
     Route: 048
     Dates: start: 20070126
  6. RITONAVIR [Concomitant]
     Dosage: UNK
     Route: 048
     Dates: start: 20070126
  7. LUMIGAN [Concomitant]
     Dosage: UNK
     Route: 047
     Dates: start: 20070214
  8. METOLAZONE [Concomitant]
     Dosage: UNK
     Route: 048
     Dates: start: 20051007
  9. POTASSIUM CHLORIDE [Concomitant]
     Dosage: UNK
     Route: 048
     Dates: start: 20040812
  10. WARFARIN [Concomitant]
     Dosage: UNK
     Route: 048
     Dates: start: 20000710
  11. ALLOPURINOL [Concomitant]
     Dosage: UNK
     Route: 048
     Dates: start: 20001026
  12. BUMEX [Concomitant]
     Dosage: UNK
     Route: 048
     Dates: start: 20070710
  13. OXYCODONE [Concomitant]
     Dosage: UNK
     Route: 048
     Dates: start: 20051031
  14. METFORMIN [Concomitant]
     Dosage: UNK
     Route: 048
     Dates: start: 20081022
  15. OMEPRAZOLE [Concomitant]
     Dosage: UNK
     Route: 048
     Dates: start: 20060418
  16. REMODULIN [Concomitant]
     Dosage: UNK
     Route: 042
     Dates: start: 20090123
  17. GLIPIZIDE [Concomitant]
     Dosage: UNK
     Route: 048
     Dates: start: 20080728
  18. AMBRISENTAN [Concomitant]
     Dosage: UNK
     Route: 048
     Dates: start: 20090126

REACTIONS (3)
  - CARDIAC FAILURE CONGESTIVE [None]
  - PULMONARY HYPERTENSION [None]
  - RENAL FAILURE [None]
